FAERS Safety Report 16404960 (Version 2)
Quarter: 2019Q2

REPORT INFORMATION
  Report Type: Report from Study
  Country: CA (occurrence: CA)
  Receive Date: 20190607
  Receipt Date: 20190619
  Transmission Date: 20190711
  Serious: Yes (Other)
  Sender: FDA-Public Use
  Company Number: CA-BRISTOL-MYERS SQUIBB COMPANY-BMS-2019-028940

PATIENT
  Age: 71 Year
  Sex: Male

DRUGS (2)
  1. NIVOLUMAB [Suspect]
     Active Substance: NIVOLUMAB
     Indication: MALIGNANT MELANOMA
     Dosage: 1 MILLIGRAM/KILOGRAM, Q3WK
     Route: 042
     Dates: start: 20190311
  2. YERVOY [Suspect]
     Active Substance: IPILIMUMAB
     Indication: MALIGNANT MELANOMA
     Dosage: 3 MILLIGRAM, Q3WK
     Route: 042
     Dates: start: 20190311

REACTIONS (13)
  - Pyrexia [Recovered/Resolved]
  - Urinary tract infection [Unknown]
  - Headache [Recovered/Resolved]
  - Behaviour disorder [Not Recovered/Not Resolved]
  - Cataract [Unknown]
  - Rash [Recovering/Resolving]
  - Fatigue [Not Recovered/Not Resolved]
  - Aphthous ulcer [Unknown]
  - Haematuria [Recovered/Resolved]
  - Weight decreased [Not Recovered/Not Resolved]
  - Adverse event [Recovered/Resolved]
  - Increased appetite [Not Recovered/Not Resolved]
  - Hyperhidrosis [Unknown]

NARRATIVE: CASE EVENT DATE: 20190608
